FAERS Safety Report 8789526 (Version 1)
Quarter: 2012Q4

REPORT INFORMATION
  Report Type: Spontaneous
  Country: None (occurrence: None)
  Receive Date: 20120905
  Receipt Date: 20120905
  Transmission Date: 20130627
  Serious: Yes (Other)
  Sender: FDA-Public Use
  Company Number: FK201202532

PATIENT
  Sex: Male

DRUGS (5)
  1. CISPLATIN [Suspect]
  2. CYCLOPHOSPHAMIDE [Suspect]
  3. ETOPOSIDE [Suspect]
  4. IFOSFAMIDE [Suspect]
  5. VINCRISTINE [Suspect]

REACTIONS (4)
  - Parkinsonism [None]
  - Dystonia [None]
  - Encephalopathy [None]
  - Blepharospasm [None]
